FAERS Safety Report 17830626 (Version 3)
Quarter: 2020Q2

REPORT INFORMATION
  Report Type: Spontaneous
  Country: US (occurrence: US)
  Receive Date: 20200527
  Receipt Date: 20200604
  Transmission Date: 20200714
  Serious: No
  Sender: FDA-Public Use
  Company Number: US-PFIZER INC-2020207851

PATIENT
  Age: 67 Year
  Sex: Female
  Weight: 63.5 kg

DRUGS (3)
  1. NARDIL [Suspect]
     Active Substance: PHENELZINE SULFATE
     Indication: AUTONOMIC NERVOUS SYSTEM IMBALANCE
  2. NARDIL [Suspect]
     Active Substance: PHENELZINE SULFATE
     Indication: AUTONOMIC DYSREFLEXIA
     Dosage: 15 MG, 3X/DAY (15 MG TABLET, ONE TABLET, THREE TIMES DAILY)
     Route: 048
     Dates: start: 1993
  3. NARDIL [Suspect]
     Active Substance: PHENELZINE SULFATE
     Indication: NERVOUS SYSTEM DISORDER

REACTIONS (5)
  - Product use in unapproved indication [Unknown]
  - Weight increased [Unknown]
  - Drug ineffective [Unknown]
  - Blood catecholamines increased [Unknown]
  - Off label use [Unknown]
